FAERS Safety Report 21875436 (Version 1)
Quarter: 2023Q1

REPORT INFORMATION
  Report Type: Spontaneous
  Country: RS (occurrence: None)
  Receive Date: 20230118
  Receipt Date: 20230118
  Transmission Date: 20230418
  Serious: Yes (Life-Threatening, Hospitalization)
  Sender: FDA-Public Use
  Company Number: RS-ROCHE-3265188

PATIENT
  Age: 35 Year
  Sex: Male

DRUGS (6)
  1. RIVOTRIL [Suspect]
     Active Substance: CLONAZEPAM
     Indication: Anxiety
     Dosage: 2 MG IN 1 DAY, USED OCCASIONALLY
     Route: 048
  2. IBUPROFEN [Suspect]
     Active Substance: IBUPROFEN
     Indication: Pyrexia
     Route: 048
     Dates: start: 20221113, end: 20221113
  3. IBUPROFEN [Suspect]
     Active Substance: IBUPROFEN
     Indication: Pyrexia
  4. ACETAMINOPHEN\CHLORPHENIRAMINE MALEATE\PSEUDOEPHEDRINE HYDROCHLORIDE [Suspect]
     Active Substance: ACETAMINOPHEN\CHLORPHENIRAMINE MALEATE\PSEUDOEPHEDRINE HYDROCHLORIDE
     Indication: Pyrexia
     Route: 048
     Dates: start: 20221113, end: 20221113
  5. ACETAMINOPHEN\CHLORPHENIRAMINE MALEATE\PSEUDOEPHEDRINE HYDROCHLORIDE [Suspect]
     Active Substance: ACETAMINOPHEN\CHLORPHENIRAMINE MALEATE\PSEUDOEPHEDRINE HYDROCHLORIDE
     Indication: Pyrexia
  6. CARBAMAZEPINE [Suspect]
     Active Substance: CARBAMAZEPINE
     Indication: Anxiety
     Dosage: 200 MG IN 1 DAY
     Route: 048

REACTIONS (1)
  - Toxic epidermal necrolysis [Recovered/Resolved with Sequelae]

NARRATIVE: CASE EVENT DATE: 20221114
